FAERS Safety Report 7315858-6 (Version None)
Quarter: 2011Q1

REPORT INFORMATION
  Report Type: 
  Country: None (occurrence: None)
  Receive Date: 20110225
  Receipt Date: 20110224
  Transmission Date: 20110831
  Serious: Yes (Hospitalization)
  Sender: FDA-Public Use
  Company Number: PL-EISAI INC-E2090-00507-CLI-PL

PATIENT
  Sex: Female
  Weight: 60 kg

DRUGS (3)
  1. CARBAMAZEPINE [Suspect]
     Route: 048
     Dates: start: 20080617, end: 20080701
  2. CARBAMAZEPINE [Suspect]
     Route: 048
     Dates: start: 20080701, end: 20080712
  3. CARBAMAZEPINE [Suspect]
     Indication: EPILEPSY
     Route: 048
     Dates: start: 20080603, end: 20080617

REACTIONS (1)
  - RASH [None]
